FAERS Safety Report 10162601 (Version 2)
Quarter: 2014Q2

REPORT INFORMATION
  Report Type: Spontaneous
  Country: US (occurrence: US)
  Receive Date: 20140509
  Receipt Date: 20140526
  Transmission Date: 20141212
  Serious: No
  Sender: FDA-Public Use
  Company Number: US-009507513-1405USA004245

PATIENT
  Sex: Male

DRUGS (7)
  1. ASMANEX TWISTHALER [Suspect]
     Dosage: 220MCG/ TWO PUFFS DAILY
     Route: 055
     Dates: start: 2006, end: 2014
  2. ASMANEX TWISTHALER [Suspect]
     Dosage: 220MCG/ TWO PUFFS DAILY
     Route: 055
     Dates: start: 2014
  3. CLARITIN [Concomitant]
     Dosage: UNK
     Route: 048
  4. SINGULAIR [Concomitant]
     Dosage: UNK
     Route: 048
  5. ALBUTEROL [Concomitant]
     Dosage: UNK
  6. ATROVENT [Concomitant]
     Dosage: UNK
  7. CONCERTA [Concomitant]
     Dosage: UNK

REACTIONS (4)
  - Asthma [Recovering/Resolving]
  - Incorrect dose administered [Unknown]
  - Drug dose omission [Unknown]
  - Product taste abnormal [Unknown]
